FAERS Safety Report 23138753 (Version 1)
Quarter: 2023Q4

REPORT INFORMATION
  Report Type: Spontaneous
  Country: US (occurrence: US)
  Receive Date: 20231102
  Receipt Date: 20231102
  Transmission Date: 20240110
  Serious: Yes (Other)
  Sender: FDA-Public Use
  Company Number: US-BAYER-2023A155662

PATIENT
  Age: 66 Year
  Sex: Female

DRUGS (3)
  1. ASPIRIN [Suspect]
     Active Substance: ASPIRIN
  2. TICAGRELOR [Suspect]
     Active Substance: TICAGRELOR
  3. HEPARIN [Suspect]
     Active Substance: HEPARIN SODIUM

REACTIONS (4)
  - Aortic intramural haematoma [None]
  - Cardiogenic shock [None]
  - Haemodynamic instability [None]
  - Labelled drug-drug interaction issue [None]
